FAERS Safety Report 24639478 (Version 5)
Quarter: 2025Q3

REPORT INFORMATION
  Report Type: Spontaneous
  Country: EU (occurrence: EU)
  Receive Date: 20241119
  Receipt Date: 20250821
  Transmission Date: 20251021
  Serious: Yes (Other)
  Sender: CELLTRION
  Company Number: EU-ROCHE-3562727

PATIENT

DRUGS (13)
  1. RITUXIMAB [Suspect]
     Active Substance: RITUXIMAB
     Indication: Thrombotic microangiopathy
     Dosage: 3 DOSE EVERY WEEK/ ONCE EVERY WEEK / UNK, WEEKLY (THREE DOSES OF RITUXIMAB)
     Route: 065
  2. RITUXIMAB [Suspect]
     Active Substance: RITUXIMAB
     Indication: Thrombotic thrombocytopenic purpura
  3. ASPIRIN [Suspect]
     Active Substance: ASPIRIN
     Indication: Thrombotic thrombocytopenic purpura
     Route: 065
  4. ASPIRIN [Suspect]
     Active Substance: ASPIRIN
     Route: 065
  5. PREDNISOLONE [Suspect]
     Active Substance: PREDNISOLONE
     Indication: Thrombotic microangiopathy
     Route: 065
  6. PREDNISOLONE [Suspect]
     Active Substance: PREDNISOLONE
     Indication: Thrombotic thrombocytopenic purpura
  7. ASPIRIN [Concomitant]
     Active Substance: ASPIRIN
     Indication: Thrombotic thrombocytopenic purpura
     Route: 065
  8. ASPIRIN [Concomitant]
     Active Substance: ASPIRIN
     Route: 065
  9. ASPIRIN [Concomitant]
     Active Substance: ASPIRIN
     Route: 065
  10. FONDAPARINUX [Concomitant]
     Active Substance: FONDAPARINUX
     Indication: Thrombotic thrombocytopenic purpura
     Route: 065
  11. FONDAPARINUX [Concomitant]
     Active Substance: FONDAPARINUX
     Route: 065
  12. FONDAPARINUX [Concomitant]
     Active Substance: FONDAPARINUX
     Route: 065
  13. PROGESTERONE [Concomitant]
     Active Substance: PROGESTERONE
     Indication: Product used for unknown indication
     Route: 065

REACTIONS (8)
  - Ovarian hyperstimulation syndrome [Recovered/Resolved]
  - Petechiae [Unknown]
  - Disease recurrence [Unknown]
  - Platelet count decreased [Unknown]
  - Abdominal pain [Recovered/Resolved]
  - Exposure during pregnancy [Unknown]
  - Maternal exposure during pregnancy [Unknown]
  - Drug effective for unapproved indication [Unknown]
